FAERS Safety Report 12665417 (Version 1)
Quarter: 2016Q3

REPORT INFORMATION
  Report Type: Spontaneous
  Country: US (occurrence: US)
  Receive Date: 20160818
  Receipt Date: 20160818
  Transmission Date: 20161109
  Serious: Yes (Other)
  Sender: FDA-Public Use
  Company Number: US-JNJFOC-20150823287

PATIENT
  Age: 45 Year
  Sex: Female
  Weight: 81.65 kg

DRUGS (4)
  1. LEVAQUIN [Suspect]
     Active Substance: LEVOFLOXACIN
     Indication: PROPHYLAXIS
     Route: 042
     Dates: start: 20050609, end: 20050613
  2. LEVAQUIN [Suspect]
     Active Substance: LEVOFLOXACIN
     Indication: PANCREATITIS
     Route: 042
     Dates: start: 2009
  3. LEVAQUIN [Suspect]
     Active Substance: LEVOFLOXACIN
     Indication: PANCREATITIS
     Route: 042
     Dates: start: 20050609, end: 20050613
  4. LEVAQUIN [Suspect]
     Active Substance: LEVOFLOXACIN
     Indication: PROPHYLAXIS
     Route: 042
     Dates: start: 2009

REACTIONS (2)
  - Neuropathy peripheral [Unknown]
  - Autonomic nervous system imbalance [Unknown]

NARRATIVE: CASE EVENT DATE: 200506
